APPROVED DRUG PRODUCT: MONOPRIL
Active Ingredient: FOSINOPRIL SODIUM
Strength: 20MG **Federal Register determination that product was not discontinued or withdrawn for safety or effectiveness reasons**
Dosage Form/Route: TABLET;ORAL
Application: N019915 | Product #003
Applicant: BRISTOL MYERS SQUIBB CO PHARMACEUTICAL RESEARCH INSTITUTE
Approved: May 16, 1991 | RLD: Yes | RS: No | Type: DISCN